FAERS Safety Report 5469391-7 (Version None)
Quarter: 2007Q3

REPORT INFORMATION
  Report Type: 
  Country: None (occurrence: None)
  Receive Date: 20070927
  Receipt Date: 20070921
  Transmission Date: 20080115
  Serious: Yes (Other)
  Sender: FDA-Public Use
  Company Number: US-GILEAD-2007-0013461

PATIENT
  Age: 10 Year
  Weight: 19.976 kg

DRUGS (2)
  1. VIREAD [Suspect]
     Route: 065
  2. KALETRA [Suspect]
     Route: 065

REACTIONS (4)
  - BLOOD GLUCOSE INCREASED [None]
  - FANCONI SYNDROME [None]
  - HYPERGLYCAEMIA [None]
  - WEIGHT DECREASED [None]
